FAERS Safety Report 10763869 (Version 1)
Quarter: 2015Q1

REPORT INFORMATION
  Report Type: Spontaneous
  Country: JP (occurrence: JP)
  Receive Date: 20150204
  Receipt Date: 20150204
  Transmission Date: 20150721
  Serious: Yes (Other)
  Sender: FDA-Public Use
  Company Number: JP-PFIZER INC-2015035091

PATIENT
  Age: 9 Decade
  Sex: Female
  Weight: 44 kg

DRUGS (12)
  1. LANSOPRAZOLE. [Concomitant]
     Active Substance: LANSOPRAZOLE
     Dosage: 15 MG, DAILY
     Route: 048
  2. INDERAL [Concomitant]
     Active Substance: PROPRANOLOL HYDROCHLORIDE
     Dosage: 10 MG, 3X/DAY
     Route: 048
  3. OPALMON [Concomitant]
     Active Substance: LIMAPROST
     Dosage: 1 TABLET, X3/DAY
     Route: 048
  4. DOGMATYL [Concomitant]
     Active Substance: SULPIRIDE
     Dosage: 50 MG, 2X/DAY
     Route: 048
  5. PRAVASTATIN [Concomitant]
     Active Substance: PRAVASTATIN\PRAVASTATIN SODIUM
     Dosage: 10 MG, DAILY
     Route: 048
  6. CALONAL [Concomitant]
     Active Substance: ACETAMINOPHEN
     Dosage: 1200 MG, DAILY
     Route: 048
     Dates: start: 201407
  7. CALONAL [Concomitant]
     Active Substance: ACETAMINOPHEN
     Dosage: 2400 MG, DAILY
     Route: 048
     Dates: start: 201408
  8. CALONAL [Concomitant]
     Active Substance: ACETAMINOPHEN
     Dosage: 400 MG, 3X/DAY
     Route: 048
     Dates: start: 201409
  9. BAYASPIRIN [Concomitant]
     Active Substance: ASPIRIN
     Dosage: 100 MG, 1X/DAY
     Route: 048
  10. ALFACALCIDOL [Concomitant]
     Active Substance: ALFACALCIDOL
     Dosage: 0.5 ?G, 1X/DAY
     Route: 048
  11. GLIMEPIRIDE. [Concomitant]
     Active Substance: GLIMEPIRIDE
     Dosage: UNK
     Dates: end: 20141005
  12. LYRICA [Suspect]
     Active Substance: PREGABALIN
     Indication: PAIN
     Dosage: 25 MG, 2X/DAY
     Route: 048
     Dates: start: 20141002, end: 20141005

REACTIONS (5)
  - Dehydration [Recovered/Resolved]
  - Loss of consciousness [Recovered/Resolved]
  - Somnolence [Recovered/Resolved]
  - Azotaemia [Recovered/Resolved]
  - Hypoglycaemia [Recovered/Resolved]

NARRATIVE: CASE EVENT DATE: 20141003
